FAERS Safety Report 8151631-7 (Version None)
Quarter: 2012Q1

REPORT INFORMATION
  Report Type: 
  Country: None (occurrence: None)
  Receive Date: 20120220
  Receipt Date: 20120208
  Transmission Date: 20120608
  Serious: Yes (Other)
  Sender: FDA-Public Use
  Company Number: US-RB-037216-12

PATIENT
  Sex: Male
  Weight: 3.2 kg

DRUGS (1)
  1. SUBOXONE [Suspect]
     Indication: DRUG DEPENDENCE
     Dosage: DECREASING DOSES DOWN TO 4 OR 6 MG DAILY
     Route: 064
     Dates: start: 20110501, end: 20120208

REACTIONS (2)
  - FOETAL EXPOSURE DURING PREGNANCY [None]
  - NEONATAL RESPIRATORY DISTRESS SYNDROME [None]
